FAERS Safety Report 7796645-1 (Version None)
Quarter: 2011Q3

REPORT INFORMATION
  Report Type: 
  Country: None (occurrence: None)
  Receive Date: 20110930
  Receipt Date: 20110916
  Transmission Date: 20111222
  Serious: Yes (Disabling, Other)
  Sender: FDA-Public Use
  Company Number: 2011MA013701

PATIENT
  Sex: Female

DRUGS (1)
  1. METOCLOPRAMIDE [Suspect]
     Dates: start: 20080501, end: 20100201

REACTIONS (3)
  - ECONOMIC PROBLEM [None]
  - EMOTIONAL DISORDER [None]
  - TARDIVE DYSKINESIA [None]
